FAERS Safety Report 7122173-2 (Version None)
Quarter: 2010Q4

REPORT INFORMATION
  Report Type: 
  Country: None (occurrence: None)
  Receive Date: 20101124
  Receipt Date: 20101118
  Transmission Date: 20110411
  Serious: Yes (Other)
  Sender: FDA-Public Use
  Company Number: US-ALLERGAN-1015050US

PATIENT
  Sex: Female

DRUGS (1)
  1. BOTOXA? [Suspect]
     Indication: TORTICOLLIS
     Dosage: UNK

REACTIONS (5)
  - BREAST CANCER [None]
  - DEPRESSION [None]
  - DYSPHAGIA [None]
  - INFLUENZA LIKE ILLNESS [None]
  - NERVOUSNESS [None]
